FAERS Safety Report 5125136-1 (Version None)
Quarter: 2006Q3

REPORT INFORMATION
  Report Type: 
  Country: None (occurrence: None)
  Receive Date: 20060822
  Receipt Date: 20060522
  Transmission Date: 20061208
  Serious: No
  Sender: FDA-Public Use
  Company Number: PHEH2006US06722

PATIENT
  Sex: Male

DRUGS (4)
  1. ENABLEX [Suspect]
     Indication: HYPERTONIC BLADDER
     Dosage: 7.5 MG, QD
     Dates: start: 20050901
  2. HYTRIN [Concomitant]
  3. LIPITOR [Concomitant]
  4. SYNTHROID [Concomitant]

REACTIONS (3)
  - DRY MOUTH [None]
  - DYSPEPSIA [None]
  - VOMITING [None]
